FAERS Safety Report 9769267 (Version 1)
Quarter: 2013Q4

REPORT INFORMATION
  Report Type: Spontaneous
  Country: IT (occurrence: None)
  Receive Date: 20131216
  Receipt Date: 20131216
  Transmission Date: 20140711
  Serious: Yes (Other)
  Sender: FDA-Public Use
  Company Number: FK201305319

PATIENT
  Age: 25 Year
  Sex: Male

DRUGS (5)
  1. DEXAMETHASONE INJECTION (MANUFACTURER UNKNOWN) (DEXAMETHASONE SODIUM PHOSPHATE) (DEXAMETHASONE SODIUM PHOSPHATE) [Suspect]
     Indication: 21-HYDROXYLASE DEFICIENCY
  2. DEXAMETHASONE INJECTION (MANUFACTURER UNKNOWN) (DEXAMETHASONE SODIUM PHOSPHATE) (DEXAMETHASONE SODIUM PHOSPHATE) [Suspect]
  3. CARBAMAZEPINE (CARBAMAZEPINE) [Suspect]
     Indication: EPILEPSY
  4. FLUDROCORTISONE [Suspect]
     Indication: 21-HYDROXYLASE DEFICIENCY
  5. FLUDROCORTISONE [Suspect]

REACTIONS (2)
  - Drug interaction [None]
  - Adrenal insufficiency [None]
